FAERS Safety Report 22275481 (Version 1)
Quarter: 2023Q2

REPORT INFORMATION
  Report Type: Spontaneous
  Country: AU (occurrence: AU)
  Receive Date: 20230502
  Receipt Date: 20230502
  Transmission Date: 20230722
  Serious: Yes (Other)
  Sender: FDA-Public Use
  Company Number: AU-JNJFOC-20230460623

PATIENT
  Age: 3 Year
  Sex: Male

DRUGS (1)
  1. TOPAMAX [Suspect]
     Active Substance: TOPIRAMATE
     Indication: Product used for unknown indication
     Route: 048

REACTIONS (10)
  - Hallucination [Unknown]
  - Status epilepticus [Unknown]
  - Depressed level of consciousness [Unknown]
  - Acidosis hyperchloraemic [Unknown]
  - Confusional state [Unknown]
  - Dizziness [Unknown]
  - Gait inability [Unknown]
  - Ataxia [Unknown]
  - Dysarthria [Unknown]
  - Hypotension [Unknown]
